FAERS Safety Report 21523302 (Version 1)
Quarter: 2022Q4

REPORT INFORMATION
  Report Type: Spontaneous
  Country: GB (occurrence: GB)
  Receive Date: 20221029
  Receipt Date: 20221029
  Transmission Date: 20230112
  Serious: Yes (Life-Threatening, Hospitalization, Other)
  Sender: FDA-Public Use
  Company Number: None

PATIENT
  Age: 47 Year
  Sex: Male
  Weight: 59 kg

DRUGS (2)
  1. QUETIAPINE [Suspect]
     Active Substance: QUETIAPINE
     Indication: Transient psychosis
     Dosage: 200 MG
     Dates: start: 20220802
  2. ZOPICLONE [Concomitant]
     Active Substance: ZOPICLONE
     Dosage: TAKE ONE OR TWO AT NIGHT   EVERUY THREE TO FOUR...
     Dates: start: 20220711, end: 20220718

REACTIONS (4)
  - Neuroleptic malignant syndrome [Recovered/Resolved]
  - Rhabdomyolysis [Unknown]
  - Mental disorder [Unknown]
  - Disorientation [Unknown]

NARRATIVE: CASE EVENT DATE: 20220927
